FAERS Safety Report 13523389 (Version 1)
Quarter: 2017Q2

REPORT INFORMATION
  Report Type: Spontaneous
  Country: US (occurrence: US)
  Receive Date: 20170508
  Receipt Date: 20170508
  Transmission Date: 20170830
  Serious: No
  Sender: FDA-Public Use
  Company Number: US-VIFOR (INTERNATIONAL) INC.-VIT-2017-03223

PATIENT
  Sex: Female

DRUGS (6)
  1. ASCORBIC ACID. [Concomitant]
     Active Substance: ASCORBIC ACID
  2. FOLIC ACID. [Concomitant]
     Active Substance: FOLIC ACID
  3. NOVOLIN [Concomitant]
     Active Substance: INSULIN HUMAN
  4. BENAZEPRIL [Concomitant]
     Active Substance: BENAZEPRIL HYDROCHLORIDE
  5. LOVASTATIN. [Concomitant]
     Active Substance: LOVASTATIN
  6. VELTASSA [Suspect]
     Active Substance: PATIROMER
     Indication: HYPERKALAEMIA
     Route: 048

REACTIONS (1)
  - Dyskinesia [Unknown]
